FAERS Safety Report 24539527 (Version 1)
Quarter: 2024Q4

REPORT INFORMATION
  Report Type: Spontaneous
  Country: DE (occurrence: DE)
  Receive Date: 20241023
  Receipt Date: 20241023
  Transmission Date: 20250115
  Serious: Yes (Life-Threatening, Hospitalization, Other)
  Sender: FRESENIUS KABI
  Company Number: DE-009507513-2410DEU001212

PATIENT
  Age: 52 Year
  Sex: Female

DRUGS (5)
  1. CARBOPLATIN [Suspect]
     Active Substance: CARBOPLATIN
     Indication: Triple negative breast cancer
     Dosage: AREA UNDER THE CURVE (AUC) 1.5
     Dates: end: 202312
  2. PACLITAXEL [Suspect]
     Active Substance: PACLITAXEL
     Indication: Triple negative breast cancer
     Dosage: 80 MG/M2 WEEKLY
     Dates: end: 202312
  3. CYCLOPHOSPHAMIDE [Suspect]
     Active Substance: CYCLOPHOSPHAMIDE
     Indication: Triple negative breast cancer
     Dosage: 2 CYCLES, Q3W
     Dates: start: 2023, end: 202312
  4. PEMBROLIZUMAB [Suspect]
     Active Substance: PEMBROLIZUMAB
     Indication: Triple negative breast cancer
     Dosage: 200 MG EVERY 3 WEEKS (Q3W)?DOSAGE FORM: SOLUTION FOR INJECTION?ROA: INTRAVENOUS
     Dates: end: 202312
  5. EPIRUBICIN [Suspect]
     Active Substance: EPIRUBICIN
     Indication: Triple negative breast cancer
     Dosage: 2 CYCLES, Q3W
     Dates: start: 2023, end: 202312

REACTIONS (6)
  - Acute kidney injury [Unknown]
  - Anaemia [Unknown]
  - Hypophysitis [Unknown]
  - Fatigue [Unknown]
  - Pyrexia [Unknown]
  - Hepatic enzyme increased [Unknown]

NARRATIVE: CASE EVENT DATE: 20230101
